FAERS Safety Report 8272406-4 (Version None)
Quarter: 2012Q2

REPORT INFORMATION
  Report Type: 
  Country: None (occurrence: None)
  Receive Date: 20120410
  Receipt Date: 20120320
  Transmission Date: 20120825
  Serious: No
  Sender: FDA-Public Use
  Company Number: US-ROXANE LABORATORIES, INC.-2012-RO-00655RO

PATIENT
  Sex: Male

DRUGS (2)
  1. M.V.I. [Concomitant]
  2. MERCAPTOPURINE [Suspect]
     Indication: CROHN'S DISEASE
     Dosage: 50 MG
     Route: 048
     Dates: start: 20100501, end: 20101001

REACTIONS (8)
  - GASTROINTESTINAL MOTILITY DISORDER [None]
  - RECTAL HAEMORRHAGE [None]
  - DRUG INEFFECTIVE FOR UNAPPROVED INDICATION [None]
  - DIARRHOEA [None]
  - MUSCLE SPASMS [None]
  - ABDOMINAL PAIN [None]
  - FISTULA DISCHARGE [None]
  - CROHN'S DISEASE [None]
